FAERS Safety Report 7133018-9 (Version None)
Quarter: 2010Q4

REPORT INFORMATION
  Report Type: 
  Country: None (occurrence: None)
  Receive Date: 20101202
  Receipt Date: 20101118
  Transmission Date: 20110411
  Serious: Yes (Congenital Anomaly)
  Sender: FDA-Public Use
  Company Number: A0847402A

PATIENT
  Sex: Female

DRUGS (2)
  1. PAXIL [Suspect]
  2. PAXIL CR [Suspect]
     Dosage: 25MG UNKNOWN
     Dates: start: 20060614, end: 20060811

REACTIONS (3)
  - CARDIAC MURMUR [None]
  - DRUG EXPOSURE DURING PREGNANCY [None]
  - VENTRICULAR SEPTAL DEFECT [None]
